FAERS Safety Report 20523478 (Version 3)
Quarter: 2023Q4

REPORT INFORMATION
  Report Type: Spontaneous
  Country: US (occurrence: US)
  Receive Date: 20220228
  Receipt Date: 20231017
  Transmission Date: 20240110
  Serious: No
  Sender: FDA-Public Use
  Company Number: US-SA-SAC20220223001280

PATIENT
  Age: 22 Year
  Sex: Male

DRUGS (7)
  1. DUPIXENT [Suspect]
     Active Substance: DUPILUMAB
     Indication: Dermatitis atopic
     Dosage: 300 MG, QOW
     Route: 058
     Dates: start: 20211012
  2. CLOBETASOL [Concomitant]
     Active Substance: CLOBETASOL
     Route: 058
  3. FAMOTIDINE [Concomitant]
     Active Substance: FAMOTIDINE
  4. FAMOTIDINE [Concomitant]
     Active Substance: FAMOTIDINE
  5. TRIAMCINOLONE ACETONIDE [Concomitant]
     Active Substance: TRIAMCINOLONE ACETONIDE
  6. DESONIDE [Concomitant]
     Active Substance: DESONIDE
  7. TRIAMCINOLONE [Concomitant]
     Active Substance: TRIAMCINOLONE

REACTIONS (3)
  - Stress [Unknown]
  - Injection site reaction [Not Recovered/Not Resolved]
  - Eye irritation [Not Recovered/Not Resolved]
